FAERS Safety Report 23386990 (Version 1)
Quarter: 2024Q1

REPORT INFORMATION
  Report Type: Spontaneous
  Country: DE (occurrence: DE)
  Receive Date: 20240110
  Receipt Date: 20240110
  Transmission Date: 20240410
  Serious: Yes (Hospitalization)
  Sender: FDA-Public Use
  Company Number: DE-BAYER-2024A001181

PATIENT
  Age: 65 Year
  Sex: Male
  Weight: 69 kg

DRUGS (2)
  1. CIPROFLOXACIN [Suspect]
     Active Substance: CIPROFLOXACIN
     Indication: Immune system disorder
     Dosage: 500 MG, BID
     Route: 048
     Dates: start: 20231220, end: 20231227
  2. AMOXICILLIN\CLAVULANIC ACID [Concomitant]
     Active Substance: AMOXICILLIN\CLAVULANIC ACID
     Dosage: UNK
     Route: 048
     Dates: start: 20231227

REACTIONS (3)
  - Mucosal ulceration [Recovered/Resolved]
  - Off label use [None]
  - Drug effective for unapproved indication [None]

NARRATIVE: CASE EVENT DATE: 20231224
